FAERS Safety Report 8814458 (Version 2)
Quarter: 2012Q4

REPORT INFORMATION
  Report Type: 
  Country: JP (occurrence: JP)
  Receive Date: 20120928
  Receipt Date: 20121025
  Transmission Date: 20130627
  Serious: Yes (Hospitalization, Other)
  Sender: FDA-Public Use
  Company Number: JP-PFIZER INC-2012237651

PATIENT
  Age: 24 Year
  Sex: Male
  Weight: 37 kg

DRUGS (10)
  1. ZOSYN [Suspect]
     Indication: PNEUMONIA
     Dosage: 4.5 g, 3x/day
     Route: 042
     Dates: start: 20120910, end: 20120917
  2. DALACIN [Suspect]
     Indication: PNEUMONIA
     Dosage: 600 mg, daily
     Route: 041
     Dates: start: 20120917, end: 20120917
  3. POLYETHYLENE GLYCOL [Suspect]
     Dosage: 2.5 g, daily
  4. PAZUFLOXACIN MESILATE [Concomitant]
     Indication: PNEUMONIA
     Dosage: 1000 mg, Daily
     Route: 041
     Dates: start: 20120918, end: 20120928
  5. GAMMA GLOBULIN [Concomitant]
     Dosage: UNK
  6. VEEN-3G [Concomitant]
     Dosage: 1680 ml, Daily
     Route: 041
     Dates: start: 20120910, end: 20120928
  7. ALEVIATIN [Concomitant]
     Indication: EPILEPSY
     Dosage: 180 mg, Daily
  8. LANDSEN [Concomitant]
     Indication: EPILEPSY
     Dosage: 0.8 mg, Daily
  9. TEGRETOL [Concomitant]
     Indication: EPILEPSY
     Dosage: 300 mg, Daily
  10. DEPAKENE [Concomitant]
     Indication: EPILEPSY
     Dosage: 1600 mg, Daily

REACTIONS (4)
  - Anaphylactic reaction [Recovered/Resolved]
  - Pancytopenia [Recovered/Resolved]
  - Gastrointestinal oedema [Recovered/Resolved]
  - Erythema multiforme [Recovered/Resolved]
